FAERS Safety Report 6893244-0 (Version None)
Quarter: 2010Q3

REPORT INFORMATION
  Report Type: 
  Country: None (occurrence: None)
  Receive Date: 20100731
  Receipt Date: 20090720
  Transmission Date: 20110219
  Serious: No
  Sender: FDA-Public Use
  Company Number: US-PFIZER INC-2009228022

PATIENT
  Sex: Female
  Weight: 74.4 kg

DRUGS (6)
  1. NORVASC [Suspect]
     Dosage: 2.5 MG, 1X/DAY
     Dates: start: 20090508, end: 20090513
  2. SYNTHROID [Concomitant]
     Dosage: UNK
  3. HYDROCHLOROTHIAZIDE [Concomitant]
     Dosage: UNK
  4. CENTRUM [Concomitant]
     Dosage: UNK
  5. CALCIUM [Concomitant]
     Dosage: UNK
  6. ACETYLSALICYLIC ACID [Concomitant]
     Dosage: UNK

REACTIONS (6)
  - ATAXIA [None]
  - DIZZINESS [None]
  - PARKINSONISM [None]
  - TINNITUS [None]
  - TREMOR [None]
  - VERTIGO [None]
